FAERS Safety Report 4985182-5 (Version None)
Quarter: 2006Q2

REPORT INFORMATION
  Report Type: 
  Country: None (occurrence: None)
  Receive Date: 20060427
  Receipt Date: 20060217
  Transmission Date: 20061013
  Serious: Yes (Hospitalization, Disabling)
  Sender: FDA-Public Use
  Company Number: US-MERCK-0602USA04815

PATIENT
  Age: 60 Year
  Sex: Male
  Weight: 89 kg

DRUGS (2)
  1. VIOXX [Suspect]
     Indication: OSTEOARTHRITIS
     Route: 048
     Dates: start: 20011130, end: 20030601
  2. TYLENOL (CAPLET) [Concomitant]
     Route: 065

REACTIONS (21)
  - ACUTE RESPIRATORY FAILURE [None]
  - ANXIETY [None]
  - BLOOD GLUCOSE INCREASED [None]
  - CEREBROVASCULAR ACCIDENT [None]
  - COLITIS ISCHAEMIC [None]
  - CONVULSION [None]
  - CORONARY ARTERY DISEASE [None]
  - DEPRESSION [None]
  - DIABETES MELLITUS [None]
  - DIVERTICULITIS [None]
  - DIVERTICULUM INTESTINAL [None]
  - FALL [None]
  - GASTROINTESTINAL HAEMORRHAGE [None]
  - HAEMATOCHEZIA [None]
  - HEAD INJURY [None]
  - HYPERTENSION [None]
  - INTERNATIONAL NORMALISED RATIO INCREASED [None]
  - LOSS OF CONSCIOUSNESS [None]
  - PAIN [None]
  - RESPIRATORY FAILURE [None]
  - TACHYCARDIA [None]
